FAERS Safety Report 15060577 (Version 1)
Quarter: 2018Q2

REPORT INFORMATION
  Report Type: Spontaneous
  Country: US (occurrence: US)
  Receive Date: 20180605
  Receipt Date: 20180605
  Transmission Date: 20180711
  Serious: Yes (Death, Hospitalization, Disabling)
  Sender: FDA-Public Use
  Company Number: None

PATIENT
  Age: 76 Year
  Sex: Female
  Weight: 81.65 kg

DRUGS (1)
  1. WARFARIN [Suspect]
     Active Substance: WARFARIN
     Indication: ANTICOAGULANT THERAPY
     Dosage: QUANTITY:90 DAY SUPPLY; 1/2 TO 1 TABLET DAILY
     Route: 048
     Dates: end: 201802

REACTIONS (1)
  - Wound infection [None]

NARRATIVE: CASE EVENT DATE: 20180310
